FAERS Safety Report 9177671 (Version 1)
Quarter: 2013Q1

REPORT INFORMATION
  Report Type: Spontaneous
  Country: US (occurrence: US)
  Receive Date: 20130321
  Receipt Date: 20130321
  Transmission Date: 20140127
  Serious: No
  Sender: FDA-Public Use
  Company Number: US-BAYER-2013-031316

PATIENT
  Age: 52 Year
  Sex: Female
  Weight: 81.63 kg

DRUGS (4)
  1. BETASERON [Suspect]
     Dosage: 0.3 MG, QOD
     Route: 058
  2. ZYRTEC [CETIRIZINE HYDROCHLORIDE] [Concomitant]
     Dosage: 10 MG, UNK
  3. CLARITIN [Concomitant]
     Dosage: 10 MG, UNK
  4. BENADRYL [ACRIVASTINE] [Concomitant]
     Dosage: 2 %, UNK

REACTIONS (1)
  - Rash papular [Unknown]
